FAERS Safety Report 14824962 (Version 2)
Quarter: 2018Q4

REPORT INFORMATION
  Report Type: Spontaneous
  Country: US (occurrence: US)
  Receive Date: 20180430
  Receipt Date: 20181101
  Transmission Date: 20190204
  Serious: No
  Sender: FDA-Public Use
  Company Number: US-LUPIN PHARMACEUTICALS INC.-2018-02448

PATIENT
  Age: 71 Year
  Sex: Male

DRUGS (2)
  1. LISINOPRIL TABLETS USP, 20MG [Suspect]
     Active Substance: LISINOPRIL
     Dosage: 20 MG, QD SMALLER TABLET (6.5 MM)
     Route: 048
  2. LISINOPRIL TABLETS USP, 20MG [Suspect]
     Active Substance: LISINOPRIL
     Indication: HYPERTENSION
     Dosage: 20 MG, QD (8 MM)
     Route: 048
     Dates: start: 201703

REACTIONS (2)
  - Drug ineffective [Unknown]
  - Hypertension [Unknown]
